FAERS Safety Report 13133081 (Version 1)
Quarter: 2017Q1

REPORT INFORMATION
  Report Type: Spontaneous
  Country: US (occurrence: US)
  Receive Date: 20170118
  Receipt Date: 20170118
  Transmission Date: 20170428
  Serious: No
  Sender: FDA-Public Use
  Company Number: None

PATIENT
  Age: 34 Year
  Sex: Female

DRUGS (1)
  1. HUMIRA [Suspect]
     Active Substance: ADALIMUMAB
     Indication: PRODUCT USED FOR UNKNOWN INDICATION
     Dosage: 40MG QOW S1
     Dates: start: 20160718

REACTIONS (7)
  - Abdominal pain lower [None]
  - Nightmare [None]
  - Quality of life decreased [None]
  - Fistula discharge [None]
  - Pain [None]
  - Abscess [None]
  - Haemorrhage [None]

NARRATIVE: CASE EVENT DATE: 20170116
